FAERS Safety Report 5424709-6 (Version None)
Quarter: 2007Q3

REPORT INFORMATION
  Report Type: 
  Country: None (occurrence: None)
  Receive Date: 20070822
  Receipt Date: 20070822
  Transmission Date: 20080115
  Serious: Yes (Hospitalization, Other)
  Sender: FDA-Public Use
  Company Number: None

PATIENT
  Age: 97 Year
  Sex: Female
  Weight: 87.0906 kg

DRUGS (2)
  1. BENAZEPRIL HCL [Suspect]
     Dosage: 20 MG
     Dates: start: 19970101, end: 20060101
  2. NITROGLYCERIN [Suspect]
     Dosage: 0.2MG/H
     Dates: start: 19970101, end: 20060101

REACTIONS (4)
  - ACTIVITIES OF DAILY LIVING IMPAIRED [None]
  - CEREBROVASCULAR ACCIDENT [None]
  - GENERAL PHYSICAL HEALTH DETERIORATION [None]
  - PHARMACEUTICAL PRODUCT COMPLAINT [None]
